FAERS Safety Report 19224777 (Version 1)
Quarter: 2021Q2

REPORT INFORMATION
  Report Type: Report from Study
  Country: US (occurrence: US)
  Receive Date: 20210506
  Receipt Date: 20210506
  Transmission Date: 20210717
  Serious: Yes (Hospitalization, Other)
  Sender: FDA-Public Use
  Company Number: NVSC2021US094644

PATIENT
  Sex: Male

DRUGS (1)
  1. ENTRESTO [Suspect]
     Active Substance: SACUBITRIL\VALSARTAN
     Indication: PRODUCT USED FOR UNKNOWN INDICATION
     Dosage: UNK UNK, BID
     Route: 048
     Dates: start: 20210329

REACTIONS (6)
  - Myocardial infarction [Unknown]
  - Heart rate decreased [Unknown]
  - Confusional state [Unknown]
  - Staphylococcal infection [Unknown]
  - Fall [Unknown]
  - Loss of consciousness [Unknown]
